FAERS Safety Report 9187229 (Version 1)
Quarter: 2013Q1

REPORT INFORMATION
  Report Type: Report from Study
  Country: US (occurrence: US)
  Receive Date: 20130325
  Receipt Date: 20130325
  Transmission Date: 20140127
  Serious: No
  Sender: FDA-Public Use
  Company Number: US-VERTEX PHARMACEUTICALS INC.-2013-003993

PATIENT
  Sex: Female
  Weight: 88 kg

DRUGS (8)
  1. VX-950 (TELAPREVIR) [Suspect]
     Indication: HEPATITIS C
     Dosage: 750 MG, TID
     Route: 048
     Dates: start: 20130207
  2. PEGASYS [Suspect]
     Indication: HEPATITIS C
     Dosage: 180 ?G, QW
     Route: 058
     Dates: start: 20130207
  3. RIBASPHERE [Suspect]
     Indication: HEPATITIS C
     Dosage: 600 MG, BID
     Dates: start: 20130207
  4. WELLBUTRIN XL [Concomitant]
     Dosage: 300 MG, QD
  5. ATIVAN [Concomitant]
     Dosage: 0.5 MG, PRN
  6. AMBIEN [Concomitant]
     Dosage: UNK, QD
  7. AMLODIPINE BESYLATE [Concomitant]
     Dosage: UNK, QD
  8. HYDROCHLOROTHIAZIDE [Concomitant]
     Dosage: UNK, QD

REACTIONS (6)
  - Disturbance in attention [Unknown]
  - Visual impairment [Unknown]
  - Pain [Unknown]
  - Fatigue [Unknown]
  - Anaemia [Unknown]
  - Nausea [Unknown]
